FAERS Safety Report 21854685 (Version 1)
Quarter: 2023Q1

REPORT INFORMATION
  Report Type: Spontaneous
  Country: US (occurrence: US)
  Receive Date: 20230112
  Receipt Date: 20230112
  Transmission Date: 20230417
  Serious: No
  Sender: FDA-Public Use
  Company Number: US-PERRIGO-22US011458

PATIENT
  Sex: Female

DRUGS (2)
  1. IBUPROFEN [Suspect]
     Active Substance: IBUPROFEN
     Indication: Pain
     Dosage: APPROX. 12 TABLETS TOTAL, UNKNOWN
     Route: 048
     Dates: start: 20220815, end: 202208
  2. IBUPROFEN [Suspect]
     Active Substance: IBUPROFEN
     Indication: Inflammation

REACTIONS (2)
  - Feeling abnormal [Recovered/Resolved]
  - Somnolence [Recovered/Resolved]

NARRATIVE: CASE EVENT DATE: 20220801
